FAERS Safety Report 18769255 (Version 1)
Quarter: 2021Q1

REPORT INFORMATION
  Report Type: Spontaneous
  Country: US (occurrence: US)
  Receive Date: 20210121
  Receipt Date: 20210121
  Transmission Date: 20210419
  Serious: Yes (Hospitalization, Other)
  Sender: FDA-Public Use
  Company Number: US-BAYER-2021-024573

PATIENT
  Age: 27 Year
  Sex: Male

DRUGS (1)
  1. PARACETAMOL [Suspect]
     Active Substance: ACETAMINOPHEN
     Indication: INFLUENZA LIKE ILLNESS
     Dosage: UNK

REACTIONS (6)
  - Renal tubular necrosis [None]
  - Acute hepatic failure [Recovered/Resolved]
  - Brain oedema [None]
  - Hyperammonaemia [None]
  - Labelled drug-food interaction medication error [None]
  - Hepatic encephalopathy [None]
